FAERS Safety Report 9952484 (Version 1)
Quarter: 2014Q1

REPORT INFORMATION
  Report Type: Report from Study
  Country: US (occurrence: US)
  Receive Date: 20140304
  Receipt Date: 20140304
  Transmission Date: 20141002
  Serious: Yes (Hospitalization)
  Sender: FDA-Public Use
  Company Number: US-ABBVIE-13P-163-1078648-00

PATIENT
  Sex: Female
  Weight: 55.84 kg

DRUGS (5)
  1. HUMIRA [Suspect]
     Indication: RHEUMATOID ARTHRITIS
     Dates: start: 201201, end: 201202
  2. HUMIRA [Suspect]
     Indication: CROHN^S DISEASE
  3. HUMIRA [Suspect]
     Indication: SPONDYLITIS
  4. PRENATAL VITAMINS [Concomitant]
     Indication: VITAMIN SUPPLEMENTATION
  5. ALBUTEROL [Concomitant]
     Indication: ASTHMA
     Dosage: RARELY USED

REACTIONS (3)
  - Crohn^s disease [Recovered/Resolved]
  - Diarrhoea [Recovered/Resolved]
  - Dehydration [Recovered/Resolved]
